FAERS Safety Report 8103972-7 (Version None)
Quarter: 2012Q1

REPORT INFORMATION
  Report Type: 
  Country: None (occurrence: None)
  Receive Date: 20120201
  Receipt Date: 20120127
  Transmission Date: 20120608
  Serious: Yes (Hospitalization, Disabling)
  Sender: FDA-Public Use
  Company Number: CA-B.I. PHARMACEUTICALS,INC./RIDGEFIELD-2011-CN-00805CN

PATIENT
  Age: 86 Year
  Sex: Female
  Weight: 38.55 kg

DRUGS (9)
  1. ARICEPT [Suspect]
     Indication: DEMENTIA
     Dosage: ONCE DAILY IN MORNING
     Route: 048
     Dates: start: 20100629, end: 20100713
  2. ROBAXICIN [Concomitant]
     Indication: PAIN IN EXTREMITY
  3. RAMIPRIL [Suspect]
     Indication: TRANSIENT ISCHAEMIC ATTACK
     Route: 048
     Dates: start: 20100601
  4. SINEMET [Concomitant]
     Indication: PARKINSON'S DISEASE
  5. AGGRENOX [Suspect]
     Indication: TRANSIENT ISCHAEMIC ATTACK
     Route: 065
     Dates: start: 20100601
  6. ROBAXICIN [Concomitant]
     Indication: GROIN PAIN
     Dates: start: 20100601
  7. TYLENOL W/ CODEINE NO. 3 [Concomitant]
     Indication: GROIN PAIN
     Dates: start: 20100601
  8. TYLENOL W/ CODEINE NO. 3 [Concomitant]
     Indication: PAIN IN EXTREMITY
  9. ASPIRIN [Concomitant]

REACTIONS (7)
  - SYNCOPE [None]
  - GASTROOESOPHAGEAL REFLUX DISEASE [None]
  - CONVULSION [None]
  - BLOOD PRESSURE ORTHOSTATIC DECREASED [None]
  - DECREASED APPETITE [None]
  - ALTERED STATE OF CONSCIOUSNESS [None]
  - DEMENTIA [None]
